FAERS Safety Report 9404579 (Version 1)
Quarter: 2013Q3

REPORT INFORMATION
  Report Type: Spontaneous
  Country: BR (occurrence: BR)
  Receive Date: 20130717
  Receipt Date: 20130717
  Transmission Date: 20140515
  Serious: Yes (Other)
  Sender: FDA-Public Use
  Company Number: BR-SANOFI-AVENTIS-2013SA069620

PATIENT
  Sex: Female
  Weight: 80 kg

DRUGS (6)
  1. LANTUS [Suspect]
     Indication: DIABETES MELLITUS
     Dosage: STRENGTH: 10 ML
     Route: 058
     Dates: start: 2011
  2. AMLODIPINE BESILATE [Concomitant]
     Indication: HYPERTENSION
     Dosage: STRENGTH: 10 MG
     Route: 048
     Dates: start: 201303
  3. DIOVANE [Concomitant]
     Indication: HYPERTENSION
     Route: 048
     Dates: start: 201303
  4. HYDRALAZINE [Concomitant]
     Indication: HYPERTENSION
     Dosage: STRENGTH: 50 MG
     Route: 048
     Dates: start: 201303
  5. INSULIN [Concomitant]
     Indication: DIABETES MELLITUS
     Route: 058
  6. INSULIN INJECTION, ISOPHANE [Concomitant]
     Indication: DIABETES MELLITUS
     Route: 058

REACTIONS (5)
  - Cholelithiasis [Recovered/Resolved]
  - Limb injury [Recovered/Resolved]
  - Pain [Recovered/Resolved]
  - Gait disturbance [Recovered/Resolved]
  - Hyperglycaemia [Not Recovered/Not Resolved]
